FAERS Safety Report 23372933 (Version 1)
Quarter: 2024Q1

REPORT INFORMATION
  Report Type: Spontaneous
  Country: US (occurrence: US)
  Receive Date: 20240105
  Receipt Date: 20240105
  Transmission Date: 20240409
  Serious: No
  Sender: FDA-Public Use
  Company Number: US-COOPERSURGICAL, INC.-US-2023CPS000518

PATIENT
  Age: 30 Year
  Sex: Female
  Weight: 83.9 kg

DRUGS (1)
  1. PARAGARD T 380A [Suspect]
     Active Substance: COPPER
     Indication: Product used for unknown indication
     Dosage: UNK
     Route: 015
     Dates: start: 20170113, end: 20230118

REACTIONS (6)
  - Vulvovaginal pain [Unknown]
  - Device dislocation [Recovered/Resolved]
  - Pelvic pain [Unknown]
  - Menstruation irregular [Unknown]
  - Heavy menstrual bleeding [Unknown]
  - Dysmenorrhoea [Unknown]

NARRATIVE: CASE EVENT DATE: 20221130
